FAERS Safety Report 17541036 (Version 2)
Quarter: 2020Q1

REPORT INFORMATION
  Report Type: Report from Study
  Country: US (occurrence: US)
  Receive Date: 20200313
  Receipt Date: 20200320
  Transmission Date: 20200409
  Serious: Yes (Death)
  Sender: FDA-Public Use
  Company Number: US-ASTRAZENECA-2020SE36981

PATIENT
  Age: 42 Year
  Sex: Male

DRUGS (3)
  1. DIPHENHYDRAMINE. [Suspect]
     Active Substance: DIPHENHYDRAMINE
     Dosage: IN UNKNOWN AMOUNTS
     Route: 048
  2. QUETIAPINE. [Suspect]
     Active Substance: QUETIAPINE
     Dosage: IN UNKNOWN AMOUNTS
     Route: 048
  3. BABY ASPIRIN [Suspect]
     Active Substance: ASPIRIN
     Dosage: IN UNKNOWN AMOUNTS
     Route: 048

REACTIONS (4)
  - Overdose [Unknown]
  - Tachypnoea [Unknown]
  - Cardiac arrest [Fatal]
  - Mental status changes [Unknown]
